FAERS Safety Report 8886052 (Version 1)
Quarter: 2012Q4

REPORT INFORMATION
  Report Type: 
  Country: NO (occurrence: NO)
  Receive Date: 20121105
  Receipt Date: 20121105
  Transmission Date: 20130627
  Serious: Yes (Hospitalization)
  Sender: FDA-Public Use
  Company Number: NO-TEVA-366931ISR

PATIENT
  Age: 31 Year
  Sex: Female

DRUGS (3)
  1. TEMOZOLOMIDE [Suspect]
     Indication: CENTRAL NERVOUS SYSTEM LYMPHOMA
     Route: 048
     Dates: start: 20120921, end: 20120921
  2. TEMOZOLOMIDE [Suspect]
     Indication: GLIOBLASTOMA
     Route: 048
     Dates: end: 20120822
  3. ZOFRAN [Concomitant]

REACTIONS (4)
  - Hypersensitivity [Unknown]
  - Angioedema [Unknown]
  - Rash pruritic [Unknown]
  - Product formulation issue [None]
